FAERS Safety Report 18303306 (Version 1)
Quarter: 2020Q3

REPORT INFORMATION
  Report Type: Spontaneous
  Country: DE (occurrence: DE)
  Receive Date: 20200923
  Receipt Date: 20200923
  Transmission Date: 20201103
  Serious: Yes (Hospitalization)
  Sender: FDA-Public Use
  Company Number: DE-TEVA-2020-DE-1831803

PATIENT
  Age: 16 Year
  Sex: Female
  Weight: 64 kg

DRUGS (4)
  1. L?THYROXIN 125 UG [Concomitant]
     Indication: HYPOTHYROIDISM
     Dosage: .5 DOSAGE FORMS DAILY;
     Route: 048
  2. L?THYROXIN 125 UG [Suspect]
     Active Substance: LEVOTHYROXINE SODIUM
     Indication: SUICIDAL IDEATION
     Dosage: 8425 MICROGRAM DAILY;
     Route: 048
     Dates: start: 20191016, end: 20191017
  3. SALBUTAMOL 0,1MG [Suspect]
     Active Substance: ALBUTEROL
     Indication: SUICIDAL IDEATION
     Dosage: 120 STROKE
     Route: 055
     Dates: start: 20191016, end: 20191017
  4. SALBUTAMOL [Concomitant]
     Active Substance: ALBUTEROL
     Indication: ASTHMA EXERCISE INDUCED
     Route: 055

REACTIONS (4)
  - Thyrotoxic crisis [Unknown]
  - Tachycardia [Unknown]
  - General physical health deterioration [Unknown]
  - Hypokalaemia [Unknown]

NARRATIVE: CASE EVENT DATE: 20191016
